FAERS Safety Report 18521173 (Version 4)
Quarter: 2021Q3

REPORT INFORMATION
  Report Type: Spontaneous
  Country: US (occurrence: US)
  Receive Date: 20201119
  Receipt Date: 20210810
  Transmission Date: 20211014
  Serious: No
  Sender: FDA-Public Use
  Company Number: US-PFIZER INC-2020454086

PATIENT
  Age: 73 Year
  Sex: Female

DRUGS (1)
  1. XELJANZ XR [Suspect]
     Active Substance: TOFACITINIB CITRATE
     Dosage: 11 MG
     Dates: start: 20200708

REACTIONS (9)
  - Drug ineffective [Unknown]
  - Back pain [Unknown]
  - Muscular weakness [Unknown]
  - Pain [Unknown]
  - Musculoskeletal stiffness [Unknown]
  - Arthralgia [Unknown]
  - Depressed mood [Unknown]
  - Peripheral swelling [Unknown]
  - Dysstasia [Unknown]

NARRATIVE: CASE EVENT DATE: 2020
